FAERS Safety Report 14161040 (Version 1)
Quarter: 2017Q4

REPORT INFORMATION
  Report Type: Report from Study
  Country: US (occurrence: US)
  Receive Date: 20171106
  Receipt Date: 20171106
  Transmission Date: 20180321
  Serious: Yes (Hospitalization)
  Sender: FDA-Public Use
  Company Number: US-VERTEX PHARMACEUTICALS-2017-005859

PATIENT
  Age: 54 Year
  Sex: Male

DRUGS (1)
  1. KALYDECO [Suspect]
     Active Substance: IVACAFTOR
     Indication: CYSTIC FIBROSIS
     Dosage: 150 MG (BLISTER), BID
     Route: 048
     Dates: start: 20171002

REACTIONS (1)
  - Cystic fibrosis respiratory infection suppression [Not Recovered/Not Resolved]

NARRATIVE: CASE EVENT DATE: 20171023
